FAERS Safety Report 15965828 (Version 3)
Quarter: 2021Q3

REPORT INFORMATION
  Report Type: Spontaneous
  Country: US (occurrence: US)
  Receive Date: 20190215
  Receipt Date: 20210729
  Transmission Date: 20211014
  Serious: No
  Sender: FDA-Public Use
  Company Number: US-PFIZER INC-2019059981

PATIENT
  Age: 58 Year
  Sex: Male

DRUGS (12)
  1. CLINDAMYCIN HCL [Suspect]
     Active Substance: CLINDAMYCIN HYDROCHLORIDE
     Dosage: UNK
  2. SUCRALOSE [Suspect]
     Active Substance: SUCRALOSE
     Dosage: UNK
  3. OXYMETAZOLINE [Suspect]
     Active Substance: OXYMETAZOLINE
     Dosage: UNK
  4. GABAPENTIN. [Suspect]
     Active Substance: GABAPENTIN
     Dosage: UNK
  5. ALCOHOL. [Suspect]
     Active Substance: ALCOHOL
     Dosage: UNK
  6. IODINE. [Suspect]
     Active Substance: IODINE
     Dosage: UNK
  7. AVONEX [Suspect]
     Active Substance: INTERFERON BETA-1A
     Dosage: UNK
  8. ASPARTAME [Suspect]
     Active Substance: ASPARTAME
     Dosage: UNK
  9. FORMALDEHYDE. [Suspect]
     Active Substance: FORMALDEHYDE
     Dosage: UNK
  10. SODIUM OXYBATE. [Suspect]
     Active Substance: SODIUM OXYBATE
     Dosage: UNK
  11. AFRIN [Suspect]
     Active Substance: OXYMETAZOLINE
     Dosage: UNK
  12. NALTREXONE [Suspect]
     Active Substance: NALTREXONE
     Dosage: UNK

REACTIONS (1)
  - Drug hypersensitivity [Unknown]
